FAERS Safety Report 4539903-6 (Version None)
Quarter: 2004Q4

REPORT INFORMATION
  Report Type: 
  Country: None (occurrence: None)
  Receive Date: 20041223
  Receipt Date: 20041209
  Transmission Date: 20050328
  Serious: Yes (Death, Other)
  Sender: FDA-Public Use
  Company Number: 2004112689

PATIENT
  Age: 41 Year
  Sex: Female

DRUGS (1)
  1. BEXTRA [Suspect]
     Indication: BONE PAIN
     Dosage: 20 MG (20 MG, 1 IN 1 D),

REACTIONS (5)
  - HAEMOPTYSIS [None]
  - NEOPLASM PROGRESSION [None]
  - OEDEMA PERIPHERAL [None]
  - PAIN [None]
  - SMALL CELL LUNG CANCER STAGE UNSPECIFIED [None]
